FAERS Safety Report 20956241 (Version 1)
Quarter: 2022Q2

REPORT INFORMATION
  Report Type: Spontaneous
  Country: US (occurrence: None)
  Receive Date: 20220614
  Receipt Date: 20220614
  Transmission Date: 20220721
  Serious: Yes (Hospitalization)
  Sender: FDA-Public Use
  Company Number: None

PATIENT
  Age: 56 Year
  Sex: Male

DRUGS (1)
  1. CEFAZOLIN [Suspect]
     Active Substance: CEFAZOLIN
     Indication: Staphylococcal infection
     Dosage: 2  GM BID IV?
     Route: 042
     Dates: start: 20220510, end: 20220517

REACTIONS (2)
  - Hepatic enzyme increased [None]
  - Wound sepsis [None]

NARRATIVE: CASE EVENT DATE: 20220423
